FAERS Safety Report 18631426 (Version 1)
Quarter: 2020Q4

REPORT INFORMATION
  Report Type: Spontaneous
  Country: US (occurrence: US)
  Receive Date: 20201218
  Receipt Date: 20201218
  Transmission Date: 20210114
  Serious: No
  Sender: FDA-Public Use
  Company Number: US-SA-2020SA358524

PATIENT

DRUGS (5)
  1. ALLEGRA ALLERGY [Suspect]
     Active Substance: FEXOFENADINE HYDROCHLORIDE
     Indication: SINUSITIS
  2. CLARITINE [Concomitant]
     Active Substance: LORATADINE
     Indication: HEADACHE
  3. CLARITINE [Concomitant]
     Active Substance: LORATADINE
     Indication: NASAL CONGESTION
  4. CLARITINE [Concomitant]
     Active Substance: LORATADINE
     Indication: CHEST DISCOMFORT
     Dosage: UNK
     Route: 065
  5. ALLEGRA ALLERGY [Suspect]
     Active Substance: FEXOFENADINE HYDROCHLORIDE
     Indication: HYPERSENSITIVITY
     Dosage: 180 MG, QD
     Route: 048

REACTIONS (2)
  - Illness [Unknown]
  - Gluten sensitivity [Unknown]
